FAERS Safety Report 24273244 (Version 2)
Quarter: 2024Q3

REPORT INFORMATION
  Report Type: Spontaneous
  Country: JP (occurrence: JP)
  Receive Date: 20240902
  Receipt Date: 20240923
  Transmission Date: 20241017
  Serious: Yes (Other)
  Sender: SUNOVION
  Company Number: JP-SMPA-2024SMP012425

PATIENT

DRUGS (1)
  1. LATUDA [Suspect]
     Active Substance: LURASIDONE HYDROCHLORIDE
     Indication: Schizophrenia
     Dosage: 20 MG, QD
     Route: 048

REACTIONS (5)
  - Diabetes mellitus [Recovering/Resolving]
  - Weight decreased [Unknown]
  - Urinary incontinence [Unknown]
  - Off label use [Unknown]
  - Prescribed underdose [Unknown]
